FAERS Safety Report 8841813 (Version 2)
Quarter: 2012Q4

REPORT INFORMATION
  Report Type: Report from Study
  Country: US (occurrence: US)
  Receive Date: 20121016
  Receipt Date: 20121017
  Transmission Date: 20130627
  Serious: Yes (Other)
  Sender: FDA-Public Use
  Company Number: US-ABBOTT-12P-163-0988977-00

PATIENT
  Age: 53 Year
  Sex: Female

DRUGS (20)
  1. HUMIRA [Suspect]
     Indication: RHEUMATOID ARTHRITIS
     Dates: start: 20120716
  2. ATENOLOL [Concomitant]
     Indication: HYPERTENSION
  3. HYDROCHLOROTHIAZIDE [Concomitant]
     Indication: HYPERTENSION
     Dosage: 25mg daily
  4. HYDROCODONE [Concomitant]
     Indication: PRODUCT USED FOR UNKNOWN INDICATION
  5. BUTRANS [Concomitant]
     Indication: PAIN
     Dosage: Wears one 20mg patch 24 hours for 7 days a week
  6. LYRICA [Concomitant]
     Indication: FIBROMYALGIA
  7. POTASSIUM [Concomitant]
     Indication: MINERAL SUPPLEMENTATION
     Dosage: 10mg daily
  8. INDOMETHACIN [Concomitant]
     Indication: MIGRAINE
  9. PROAIR INHALER [Concomitant]
     Indication: CHRONIC OBSTRUCTIVE PULMONARY DISEASE
  10. PRILOSEC [Concomitant]
     Indication: PRODUCT USED FOR UNKNOWN INDICATION
     Dosage: 1 capsule before meals
  11. FOLIC ACID [Concomitant]
     Indication: VITAMIN SUPPLEMENTATION
     Dosage: 400mg daily
  12. CALCIUM VITAMIN D [Concomitant]
     Indication: PRODUCT USED FOR UNKNOWN INDICATION
     Dosage: Daily
  13. MULTI VIT [Concomitant]
     Indication: PRODUCT USED FOR UNKNOWN INDICATION
     Dosage: Daily
  14. VIT E [Concomitant]
     Indication: VITAMIN SUPPLEMENTATION
     Dosage: 2 tablets daily
  15. PREDNISONE [Concomitant]
     Indication: RHEUMATOID ARTHRITIS
     Dosage: 5mg daily
  16. METHOTREXATE [Concomitant]
     Indication: RHEUMATOID ARTHRITIS
     Dosage: 8 tablets weekly
  17. BABY ASA [Concomitant]
     Indication: ELECTROCARDIOGRAM ABNORMAL
  18. NITROSTAT [Concomitant]
     Indication: CHEST PAIN
  19. TRAZODONE [Concomitant]
     Indication: INSOMNIA
     Dosage: 150mg daily
  20. MELOXICAN [Concomitant]
     Indication: RHEUMATOID ARTHRITIS
     Dosage: 15mg daily

REACTIONS (2)
  - Back pain [Recovering/Resolving]
  - Thyroid neoplasm [Unknown]
